FAERS Safety Report 9188726 (Version 2)
Quarter: 2013Q4

REPORT INFORMATION
  Report Type: Report from Study
  Country: DE (occurrence: DE)
  Receive Date: 20130325
  Receipt Date: 20131003
  Transmission Date: 20140711
  Serious: Yes (Hospitalization)
  Sender: FDA-Public Use
  Company Number: DE-AMGEN-DEUCT2013019794

PATIENT
  Age: 46 Year
  Sex: Female

DRUGS (6)
  1. ETANERCEPT [Suspect]
     Indication: RHEUMATOID ARTHRITIS
     Dosage: 50 MG, EVERY 7 DAYS
     Route: 065
  2. METHOTREXATE [Concomitant]
     Indication: RHEUMATOID ARTHRITIS
     Dosage: 20 MG, WEEKLY
  3. LODOTRA [Concomitant]
     Dosage: 5 MG, UNK
  4. DICLOFENAC [Concomitant]
     Dosage: 75 MG, UNK
  5. METOPROLOL [Concomitant]
     Dosage: 50 MG, UNK
  6. PANTOPRAZOL [Concomitant]
     Dosage: 40 MG, UNK

REACTIONS (1)
  - Precancerous skin lesion [Not Recovered/Not Resolved]
